FAERS Safety Report 6222672-1 (Version None)
Quarter: 2009Q2

REPORT INFORMATION
  Report Type: 
  Country: None (occurrence: None)
  Receive Date: 20090611
  Receipt Date: 20090529
  Transmission Date: 20091009
  Serious: Yes (Hospitalization)
  Sender: FDA-Public Use
  Company Number: CH-ELI_LILLY_AND_COMPANY-CH200903004330

PATIENT
  Age: 68 Year
  Sex: Male

DRUGS (10)
  1. ZYPREXA [Suspect]
     Indication: BIPOLAR II DISORDER
     Dosage: 10 MG, DAILY (1/D)
     Route: 048
     Dates: start: 20060901
  2. EFFEXOR [Interacting]
     Dosage: 75 MG, DAILY (1/D)
     Route: 048
  3. ENTUMIN [Concomitant]
     Dosage: 50 MG, DAILY (1/D)
     Route: 048
     Dates: start: 20080315, end: 20080402
  4. AKINETON /00079501/ [Concomitant]
     Dosage: 2 MG, DAILY (1/D)
     Route: 048
     Dates: start: 20080315, end: 20080328
  5. LORAZEPAM [Concomitant]
     Dosage: 4 MG, DAILY (1/D)
     Route: 048
     Dates: start: 20080315, end: 20080402
  6. LORAZEPAM [Concomitant]
     Dosage: 6 MG, DAILY (1/D)
     Route: 048
     Dates: start: 20080403, end: 20080409
  7. LORAZEPAM [Concomitant]
     Dosage: 5 MG, DAILY (1/D)
     Route: 048
     Dates: start: 20080410, end: 20080410
  8. LORAZEPAM [Concomitant]
     Dosage: 4 MG, DAILY (1/D)
     Route: 048
     Dates: start: 20080411, end: 20080413
  9. LORAZEPAM [Concomitant]
     Dosage: 3 MG, DAILY (1/D)
     Route: 048
     Dates: start: 20080414, end: 20080415
  10. LORAZEPAM [Concomitant]
     Dosage: 2.5 MG, DAILY (1/D)
     Route: 048
     Dates: start: 20080416, end: 20080417

REACTIONS (3)
  - CONDITION AGGRAVATED [None]
  - DRUG INTERACTION [None]
  - SINUS TACHYCARDIA [None]
